FAERS Safety Report 18919061 (Version 8)
Quarter: 2023Q4

REPORT INFORMATION
  Report Type: Report from Study
  Country: CA (occurrence: CA)
  Receive Date: 20210220
  Receipt Date: 20231222
  Transmission Date: 20240110
  Serious: Yes (Other)
  Sender: FDA-Public Use
  Company Number: CA-SHIRE-CA202001861

PATIENT
  Age: 79 Year
  Sex: Female

DRUGS (17)
  1. HUMAN IMMUNOGLOBULIN G [Suspect]
     Active Substance: HUMAN IMMUNOGLOBULIN G
     Indication: Primary immunodeficiency syndrome
     Dosage: 8 MILLIGRAM, 1/WEEK
     Route: 058
     Dates: start: 20181029
  2. HUMAN IMMUNOGLOBULIN G [Suspect]
     Active Substance: HUMAN IMMUNOGLOBULIN G
     Indication: Chronic fatigue syndrome
     Dosage: 8 GRAM, Q2WEEKS
     Route: 058
  3. HUMAN IMMUNOGLOBULIN G [Suspect]
     Active Substance: HUMAN IMMUNOGLOBULIN G
     Dosage: 8 GRAM, Q2WEEKS
     Route: 050
  4. HUMAN IMMUNOGLOBULIN G [Suspect]
     Active Substance: HUMAN IMMUNOGLOBULIN G
     Dosage: 8 GRAM, 1/WEEK
     Route: 058
  5. HUMAN IMMUNOGLOBULIN G [Suspect]
     Active Substance: HUMAN IMMUNOGLOBULIN G
     Dosage: UNK
     Route: 050
  6. HYQVIA [Suspect]
     Active Substance: HUMAN IMMUNOGLOBULIN G\HYALURONIDASE (HUMAN RECOMBINANT)
     Indication: Product used for unknown indication
     Dosage: UNK
     Route: 065
  7. ELIQUIS [Concomitant]
     Active Substance: APIXABAN
     Indication: Coagulopathy
     Dosage: UNK
     Route: 065
  8. FLECAINIDE [Concomitant]
     Active Substance: FLECAINIDE
     Indication: Atrial fibrillation
     Dosage: UNK
     Route: 065
  9. ATORVASTATIN [Concomitant]
     Active Substance: ATORVASTATIN
     Indication: Blood cholesterol increased
     Dosage: UNK
     Route: 065
  10. BISOPROLOL [Concomitant]
     Active Substance: BISOPROLOL\BISOPROLOL FUMARATE
     Indication: Hypertension
     Dosage: UNK
     Route: 065
  11. DEXILANT [Concomitant]
     Active Substance: DEXLANSOPRAZOLE
     Indication: Gastrooesophageal reflux disease
     Dosage: UNK
     Route: 065
  12. FAMCICLOVIR [Concomitant]
     Active Substance: FAMCICLOVIR
     Indication: Herpes virus infection
     Dosage: UNK
     Route: 065
  13. METFORMIN [Concomitant]
     Active Substance: METFORMIN HYDROCHLORIDE
     Indication: Product used for unknown indication
     Dosage: UNK
     Route: 065
  14. MODAFINIL [Concomitant]
     Active Substance: MODAFINIL
     Indication: Fatigue
     Dosage: UNK
     Route: 065
  15. SYNTHROID [Concomitant]
     Active Substance: LEVOTHYROXINE SODIUM
     Indication: Hypothyroidism
     Dosage: UNK
     Route: 065
  16. VAGIFEM [Concomitant]
     Active Substance: ESTRADIOL
     Indication: Lichen sclerosus
     Dosage: UNK
     Route: 065
  17. HIZENTRA [Concomitant]
     Active Substance: HUMAN IMMUNOGLOBULIN G
     Dosage: 5 MILLILITER
     Route: 065

REACTIONS (26)
  - Atrial fibrillation [Unknown]
  - Bronchitis [Recovering/Resolving]
  - Herpes virus infection [Recovering/Resolving]
  - Sinusitis [Recovering/Resolving]
  - Hypersomnia [Recovering/Resolving]
  - Lymphadenopathy [Recovering/Resolving]
  - Malaise [Recovering/Resolving]
  - Clumsiness [Unknown]
  - Chronic fatigue syndrome [Unknown]
  - Malabsorption from administration site [Unknown]
  - Heart rate decreased [Unknown]
  - Needle issue [Unknown]
  - Haemorrhage [Unknown]
  - Balance disorder [Unknown]
  - Infusion site nodule [Unknown]
  - Heart rate increased [Unknown]
  - Infusion site mass [Unknown]
  - Asthenia [Unknown]
  - Injection site pain [Unknown]
  - Back pain [Not Recovered/Not Resolved]
  - Dyspnoea [Unknown]
  - Pruritus [Recovering/Resolving]
  - Post-acute COVID-19 syndrome [Not Recovered/Not Resolved]
  - Incorrect product administration duration [Unknown]
  - Incorrect drug administration rate [Unknown]
  - Off label use [Unknown]

NARRATIVE: CASE EVENT DATE: 20181029
